FAERS Safety Report 24769536 (Version 2)
Quarter: 2025Q1

REPORT INFORMATION
  Report Type: Spontaneous
  Country: CA (occurrence: CA)
  Receive Date: 20241224
  Receipt Date: 20250320
  Transmission Date: 20250408
  Serious: Yes (Disabling, Other)
  Sender: ABBVIE
  Company Number: CA-LUNDBECK-DKLU4008221

PATIENT
  Age: 30 Year
  Sex: Male
  Weight: 118 kg

DRUGS (4)
  1. ESCITALOPRAM [Suspect]
     Active Substance: ESCITALOPRAM OXALATE
     Indication: Depression
     Dosage: 10 MILLIGRAM
     Route: 048
  2. RYBELSUS [Concomitant]
     Active Substance: SEMAGLUTIDE
     Indication: Product used for unknown indication
     Route: 048
  3. VYVANSE [Suspect]
     Active Substance: LISDEXAMFETAMINE DIMESYLATE
     Indication: Attention deficit hyperactivity disorder
     Route: 048
  4. VYVANSE [Suspect]
     Active Substance: LISDEXAMFETAMINE DIMESYLATE
     Indication: Attention deficit hyperactivity disorder
     Dosage: 60 MILLIGRAM
     Route: 048

REACTIONS (42)
  - Abdominal discomfort [Recovering/Resolving]
  - Fear [Recovering/Resolving]
  - Asthenia [Recovering/Resolving]
  - Drug dependence [Recovering/Resolving]
  - Anger [Recovering/Resolving]
  - Tension [Recovering/Resolving]
  - Self-injurious ideation [Recovering/Resolving]
  - Fatigue [Recovering/Resolving]
  - Oropharyngeal pain [Recovering/Resolving]
  - Emotional distress [Recovering/Resolving]
  - Chest discomfort [Recovering/Resolving]
  - Irritability [Recovering/Resolving]
  - Depressed mood [Recovering/Resolving]
  - Eye irritation [Recovering/Resolving]
  - Pain [Recovering/Resolving]
  - Hyperacusis [Recovering/Resolving]
  - Parosmia [Recovering/Resolving]
  - Compulsions [Recovering/Resolving]
  - Panic reaction [Recovering/Resolving]
  - Tinnitus [Recovering/Resolving]
  - Feeling abnormal [Recovering/Resolving]
  - Anxiety [Recovering/Resolving]
  - Eye pain [Recovering/Resolving]
  - Palpitations [Recovering/Resolving]
  - Impaired work ability [Recovering/Resolving]
  - Paranoia [Recovering/Resolving]
  - Confusional state [Recovering/Resolving]
  - Mania [Recovering/Resolving]
  - Hot flush [Recovering/Resolving]
  - Disturbance in attention [Recovering/Resolving]
  - Facial pain [Recovering/Resolving]
  - Crying [Recovering/Resolving]
  - Crying [Recovering/Resolving]
  - Social avoidant behaviour [Recovering/Resolving]
  - Burning sensation [Recovering/Resolving]
  - Agitation [Recovering/Resolving]
  - Aggression [Recovering/Resolving]
  - Freezing phenomenon [Recovering/Resolving]
  - Lethargy [Recovering/Resolving]
  - Musculoskeletal stiffness [Recovering/Resolving]
  - Drug dependence [Recovering/Resolving]
  - Asthenia [Recovering/Resolving]
